FAERS Safety Report 24629411 (Version 3)
Quarter: 2024Q4

REPORT INFORMATION
  Report Type: Spontaneous
  Country: JP (occurrence: JP)
  Receive Date: 20241118
  Receipt Date: 20241226
  Transmission Date: 20250115
  Serious: Yes (Hospitalization)
  Sender: GALDERMA
  Company Number: JP-GALDERMA-JP2024007151

PATIENT

DRUGS (27)
  1. NEMOLIZUMAB [Suspect]
     Active Substance: NEMOLIZUMAB
     Indication: Dermatitis atopic
     Dosage: 60 MILLIGRAM/4 WEEKS
     Route: 058
     Dates: start: 20240219, end: 20240219
  2. NEMOLIZUMAB [Suspect]
     Active Substance: NEMOLIZUMAB
     Dosage: 60 MILLIGRAM/4 WEEKS
     Route: 058
     Dates: start: 20240316, end: 20240316
  3. PREDNISOLONE ACETATE [Concomitant]
     Active Substance: PREDNISOLONE ACETATE
     Indication: Dermatitis atopic
     Dosage: 20 MILLIGRAM, QD
     Route: 048
     Dates: start: 20240109, end: 20240113
  4. PREDNISOLONE ACETATE [Concomitant]
     Active Substance: PREDNISOLONE ACETATE
     Dosage: 15 MILLIGRAM, QD
     Route: 048
     Dates: start: 20240129, end: 20240204
  5. PREDNISOLONE ACETATE [Concomitant]
     Active Substance: PREDNISOLONE ACETATE
     Dosage: 5 MILLIGRAM, QD
     Route: 048
     Dates: start: 20240205, end: 20240211
  6. PREDNISOLONE ACETATE [Concomitant]
     Active Substance: PREDNISOLONE ACETATE
     Dosage: 40 MILLIGRAM, QD
     Route: 048
     Dates: start: 20240206, end: 20240208
  7. PREDNISOLONE ACETATE [Concomitant]
     Active Substance: PREDNISOLONE ACETATE
     Dosage: 15 MILLIGRAM, QD
     Route: 048
     Dates: start: 20240209, end: 20240211
  8. PREDNISOLONE ACETATE [Concomitant]
     Active Substance: PREDNISOLONE ACETATE
     Dosage: 5 MILLIGRAM, QD
     Route: 048
     Dates: start: 20240219, end: 20240225
  9. PREDNISOLONE ACETATE [Concomitant]
     Active Substance: PREDNISOLONE ACETATE
     Dosage: 30 MILLIGRAM, QD
     Route: 048
     Dates: start: 20240312, end: 20240315
  10. PREDNISOLONE ACETATE [Concomitant]
     Active Substance: PREDNISOLONE ACETATE
     Dosage: 15 MILLIGRAM, QD
     Route: 048
     Dates: start: 20240316, end: 20240318
  11. PREDNISOLONE ACETATE [Concomitant]
     Active Substance: PREDNISOLONE ACETATE
     Dosage: 30 MILLIGRAM, QD
     Route: 048
     Dates: start: 20240325, end: 20240328
  12. PREDNISOLONE ACETATE [Concomitant]
     Active Substance: PREDNISOLONE ACETATE
     Dosage: 15 MILLIGRAM, QD
     Route: 048
     Dates: start: 20240329, end: 20240401
  13. PREDNISOLONE ACETATE [Concomitant]
     Active Substance: PREDNISOLONE ACETATE
     Dosage: 5 MILLIGRAM, QD
     Route: 048
     Dates: start: 20240402, end: 20240404
  14. POLAPREZINC [Concomitant]
     Active Substance: POLAPREZINC
     Indication: Zinc deficiency
     Dosage: 150 MILLIGRAM
     Route: 048
     Dates: start: 20240203, end: 20240404
  15. POLAPREZINC [Concomitant]
     Active Substance: POLAPREZINC
     Indication: Gastritis
  16. NICOTINAMIDE [Concomitant]
     Active Substance: NIACINAMIDE
     Indication: Gastrointestinal disorder
     Dosage: UNK
     Route: 048
     Dates: start: 20240203, end: 20240404
  17. NICOTINAMIDE [Concomitant]
     Active Substance: NIACINAMIDE
     Indication: Nicotinic acid deficiency
  18. OLOPATADINE HYDROCHLORIDE [Concomitant]
     Active Substance: OLOPATADINE HYDROCHLORIDE
     Indication: Dermatitis atopic
     Route: 048
  19. MOIZERTO [Concomitant]
     Indication: Dermatitis atopic
     Dosage: UNK
     Route: 061
     Dates: start: 20240129, end: 20240404
  20. MOIZERTO [Concomitant]
     Dosage: UNK
     Route: 061
     Dates: start: 20240109, end: 20240404
  21. DESLORATADINE [Concomitant]
     Active Substance: DESLORATADINE
     Indication: Dermatitis atopic
     Dosage: 10 MILLIGRAM
     Route: 048
     Dates: start: 20240219, end: 20240409
  22. BETAMETHASONE DIPROPIONATE [Concomitant]
     Active Substance: BETAMETHASONE DIPROPIONATE
     Indication: Dermatitis atopic
     Dosage: UNK, BID
     Route: 061
     Dates: start: 20240109, end: 20240404
  23. TERRA CORTRIL [HYDROCORTISONE;OXYTETRACYCLINE HYDROCHLORIDE] [Concomitant]
     Indication: Skin erosion
     Dosage: UNK
     Route: 061
     Dates: start: 20240109, end: 20240404
  24. ZINC OXIDE [Concomitant]
     Active Substance: ZINC OXIDE
     Indication: Skin erosion
     Dosage: UNK
     Route: 061
     Dates: start: 20240109, end: 20240404
  25. HEPARINOID [Concomitant]
     Indication: Dermatitis atopic
     Dosage: UNK
     Route: 061
     Dates: start: 20240129, end: 20240404
  26. CINAL [ASCORBIC ACID;CALCIUM PANTOTHENATE] [Concomitant]
     Indication: Nicotinic acid deficiency
     Dosage: 3 GRAM
     Route: 048
     Dates: start: 20240203, end: 20240404
  27. KEFLEX [Concomitant]
     Active Substance: CEPHALEXIN
     Indication: Fascial infection
     Dosage: 100 MILLIGRAM
     Route: 048
     Dates: start: 20240312, end: 20240316

REACTIONS (2)
  - Cellulitis [Recovered/Resolved]
  - Fall [Unknown]

NARRATIVE: CASE EVENT DATE: 20240404
